FAERS Safety Report 18385766 (Version 1)
Quarter: 2020Q4

REPORT INFORMATION
  Report Type: Spontaneous
  Country: SE (occurrence: SE)
  Receive Date: 20201015
  Receipt Date: 20201015
  Transmission Date: 20210114
  Serious: Yes (Hospitalization)
  Sender: FDA-Public Use
  Company Number: SE-TEVA-2020-SE-1837737

PATIENT
  Age: 51 Year
  Sex: Male

DRUGS (1)
  1. PREDNISOLON [Suspect]
     Active Substance: PREDNISOLONE
     Indication: INFLAMMATION
     Dates: start: 202009, end: 20200918

REACTIONS (4)
  - Headache [Recovering/Resolving]
  - Asthenia [Recovering/Resolving]
  - Emotional disorder [Recovering/Resolving]
  - Dizziness [Recovering/Resolving]

NARRATIVE: CASE EVENT DATE: 202009
